FAERS Safety Report 20758809 (Version 1)
Quarter: 2022Q2

REPORT INFORMATION
  Report Type: Spontaneous
  Country: PT (occurrence: PT)
  Receive Date: 20220427
  Receipt Date: 20220427
  Transmission Date: 20220721
  Serious: Yes (Other)
  Sender: FDA-Public Use
  Company Number: PT-ARBOR PHARMACEUTICALS, LLC-PT-2022ARB001094

PATIENT

DRUGS (1)
  1. EDARBYCLOR [Suspect]
     Active Substance: AZILSARTAN KAMEDOXOMIL\CHLORTHALIDONE
     Indication: Hypertension
     Dosage: UNK
     Route: 048
     Dates: start: 20220316, end: 20220323

REACTIONS (1)
  - Heart alternation [Recovered/Resolved]

NARRATIVE: CASE EVENT DATE: 20220316
